FAERS Safety Report 4280726-3 (Version None)
Quarter: 2004Q1

REPORT INFORMATION
  Report Type: 
  Country: None (occurrence: None)
  Receive Date: 20040129
  Receipt Date: 20031103
  Transmission Date: 20041129
  Serious: No
  Sender: FDA-Public Use
  Company Number: US-BRISTOL-MYERS SQUIBB COMPANY-12424966

PATIENT
  Age: 55 Year
  Sex: Female
  Weight: 109 kg

DRUGS (2)
  1. METAGLIP [Suspect]
     Indication: DIABETES MELLITUS
     Route: 048
     Dates: start: 20031101
  2. NEURONTIN [Concomitant]

REACTIONS (2)
  - CRYING [None]
  - DEPRESSED MOOD [None]
